FAERS Safety Report 6318071-4 (Version None)
Quarter: 2009Q3

REPORT INFORMATION
  Report Type: 
  Country: None (occurrence: None)
  Receive Date: 20090821
  Receipt Date: 20090819
  Transmission Date: 20100115
  Serious: Yes (Death, Hospitalization, Other)
  Sender: FDA-Public Use
  Company Number: FR-ROXANE LABORATORIES, INC.-2009-RO-00843RO

PATIENT
  Age: 8 Year
  Sex: Male

DRUGS (7)
  1. CYCLOPHOSPHAMIDE [Suspect]
     Indication: METASTASES TO MENINGES
     Route: 048
  2. CYCLOPHOSPHAMIDE [Suspect]
  3. CELECOXIB [Suspect]
     Indication: METASTASES TO MENINGES
     Dosage: 200 MG
  4. CELECOXIB [Suspect]
  5. ETOPOSIDE [Suspect]
     Indication: METASTASES TO MENINGES
     Route: 048
  6. ETOPOSIDE [Suspect]
  7. TEMOZOLOMIDE [Suspect]
     Indication: SUBDURAL HAEMATOMA
     Route: 048

REACTIONS (5)
  - DEATH [None]
  - DRUG INEFFECTIVE [None]
  - INTRACRANIAL PRESSURE INCREASED [None]
  - SUBDURAL HAEMATOMA [None]
  - THROMBOCYTOPENIA [None]
